FAERS Safety Report 12342549 (Version 1)
Quarter: 2016Q2

REPORT INFORMATION
  Report Type: Spontaneous
  Country: US (occurrence: US)
  Receive Date: 20160506
  Receipt Date: 20160506
  Transmission Date: 20160815
  Serious: Yes (Other)
  Sender: FDA-Public Use
  Company Number: US-ELI_LILLY_AND_COMPANY-US201605000918

PATIENT
  Sex: Female

DRUGS (1)
  1. GLUCAGON. [Suspect]
     Active Substance: GLUCAGON
     Indication: HYPERINSULINAEMIC HYPOGLYCAEMIA
     Dosage: UNK, UNKNOWN
     Route: 042

REACTIONS (1)
  - Necrolytic migratory erythema [Recovered/Resolved]
